FAERS Safety Report 5950129-1 (Version None)
Quarter: 2008Q4

REPORT INFORMATION
  Report Type: 
  Country: None (occurrence: None)
  Receive Date: 20081112
  Receipt Date: 20080407
  Transmission Date: 20090506
  Serious: Yes (Other)
  Sender: FDA-Public Use
  Company Number: US-BAYER-200813731NA

PATIENT
  Age: 67 Year
  Sex: Male

DRUGS (7)
  1. AVELOX [Suspect]
     Indication: PNEUMONIA
     Dosage: TOTAL DAILY DOSE: 400 MG  UNIT DOSE: 400 MG
     Route: 048
     Dates: start: 20080301, end: 20080301
  2. AVELOX [Interacting]
     Route: 048
     Dates: start: 20080101, end: 20080101
  3. BETAPACE [Interacting]
     Dosage: TOTAL DAILY DOSE: 240 MG
     Route: 048
  4. DIOVAN [Concomitant]
  5. PLAVIX [Concomitant]
  6. LIPITOR [Concomitant]
  7. PRILOSEC [Concomitant]

REACTIONS (2)
  - DIZZINESS [None]
  - TORSADE DE POINTES [None]
